FAERS Safety Report 16186476 (Version 2)
Quarter: 2019Q2

REPORT INFORMATION
  Report Type: Spontaneous
  Country: US (occurrence: US)
  Receive Date: 20190411
  Receipt Date: 20190513
  Transmission Date: 20190711
  Serious: No
  Sender: FDA-Public Use
  Company Number: US-BAUSCH-BL-2019-009618

PATIENT
  Sex: Male
  Weight: 84.9 kg

DRUGS (3)
  1. CARDIZEM CD [Suspect]
     Active Substance: DILTIAZEM HYDROCHLORIDE
     Route: 048
  2. CARDIZEM CD [Suspect]
     Active Substance: DILTIAZEM HYDROCHLORIDE
     Indication: HYPERTENSION
     Dosage: OVER 10 YEARS AGO
     Route: 048
  3. DILTIAZEM ER 240MG [Suspect]
     Active Substance: DILTIAZEM HYDROCHLORIDE
     Indication: HYPERTENSION
     Dosage: OVER THE PAST 10 YEARS (GENERIC)
     Route: 048

REACTIONS (9)
  - Dyspnoea [Unknown]
  - Dizziness [Unknown]
  - Wrong dose [Unknown]
  - Balance disorder [Unknown]
  - Nausea [Unknown]
  - Product substitution issue [Unknown]
  - Chest discomfort [Unknown]
  - Confusional state [Unknown]
  - Hangover [Unknown]
